FAERS Safety Report 9939260 (Version 1)
Quarter: 2014Q1

REPORT INFORMATION
  Report Type: Report from Study
  Country: US (occurrence: US)
  Receive Date: 20140303
  Receipt Date: 20140303
  Transmission Date: 20141002
  Serious: No
  Sender: FDA-Public Use
  Company Number: US-ABBVIE-13P-163-1037429-00

PATIENT
  Age: 26 Year
  Sex: Male
  Weight: 65.38 kg

DRUGS (2)
  1. HUMIRA [Suspect]
     Indication: CROHN^S DISEASE
     Dates: start: 201210
  2. ASACOL [Concomitant]
     Indication: CROHN^S DISEASE
     Dates: start: 201111

REACTIONS (3)
  - Perirectal abscess [Recovered/Resolved]
  - Sinusitis [Recovered/Resolved]
  - Abscess drainage [Recovered/Resolved]
